FAERS Safety Report 19091787 (Version 1)
Quarter: 2021Q2

REPORT INFORMATION
  Report Type: Spontaneous
  Country: US (occurrence: US)
  Receive Date: 20210405
  Receipt Date: 20210405
  Transmission Date: 20210717
  Serious: Yes (Hospitalization)
  Sender: FDA-Public Use
  Company Number: None

PATIENT
  Age: 66 Year
  Sex: Male

DRUGS (1)
  1. LOSARTAN (LOSARTAN POTASSIUM 100MG TAB) [Suspect]
     Active Substance: LOSARTAN POTASSIUM
     Dates: start: 20190325, end: 20210120

REACTIONS (5)
  - Insomnia [None]
  - Joint swelling [None]
  - Stress [None]
  - Tooth infection [None]
  - Angioedema [None]

NARRATIVE: CASE EVENT DATE: 20201230
